FAERS Safety Report 11787831 (Version 6)
Quarter: 2016Q1

REPORT INFORMATION
  Report Type: Report from Study
  Country: HU (occurrence: HU)
  Receive Date: 20151130
  Receipt Date: 20160309
  Transmission Date: 20160525
  Serious: Yes (Death, Hospitalization)
  Sender: FDA-Public Use
  Company Number: HU-ALEXION-A201504779

PATIENT
  Age: 73 Year
  Sex: Female
  Weight: 48 kg

DRUGS (25)
  1. ECULIZUMAB [Suspect]
     Active Substance: ECULIZUMAB
     Indication: MYASTHENIA GRAVIS
     Dosage: QW
     Route: 042
     Dates: start: 20150721, end: 20150810
  2. HUMULIN M3 [Concomitant]
     Active Substance: INSULIN HUMAN
     Indication: DIABETES MELLITUS
     Dosage: 10 IU, QD IN THE EVENING
     Route: 058
     Dates: start: 201412, end: 20151108
  3. VITAMIN C [Concomitant]
     Active Substance: ASCORBIC ACID
     Indication: VITAMIN SUPPLEMENTATION
     Dosage: 1000 MG, SINGLE
     Route: 049
     Dates: start: 20151124, end: 20151124
  4. ECULIZUMAB [Suspect]
     Active Substance: ECULIZUMAB
     Dosage: Q2W
     Route: 042
     Dates: start: 20150818, end: 20151123
  5. FRONTIN [Concomitant]
     Active Substance: ALPRAZOLAM
     Indication: ANXIETY
     Dosage: 0.25 MG, PRN
     Route: 049
     Dates: start: 20151116
  6. ECULIZUMAB [Suspect]
     Active Substance: ECULIZUMAB
     Dosage: Q2W
     Route: 042
     Dates: start: 20151116, end: 20151116
  7. PANTOPRAZOL [Concomitant]
     Active Substance: PANTOPRAZOLE SODIUM
     Indication: GASTROOESOPHAGEAL REFLUX DISEASE
     Dosage: 40 MG, QD
     Route: 048
     Dates: start: 20151026, end: 20151109
  8. ECULIZUMAB [Suspect]
     Active Substance: ECULIZUMAB
     Dosage: Q2W
     Route: 042
     Dates: start: 20151113, end: 20151113
  9. MYFENAX [Concomitant]
     Active Substance: MYCOPHENOLATE MOFETIL
     Indication: MYASTHENIA GRAVIS
     Dosage: 500 MG, BID
     Route: 048
     Dates: start: 20141218
  10. ACTRAPID [Concomitant]
     Active Substance: INSULIN HUMAN
     Indication: DIABETES MELLITUS
     Dosage: UNK IU, PRN
     Route: 058
     Dates: start: 20151109
  11. EUNOCTIN [Concomitant]
     Indication: INSOMNIA
     Dosage: 10 MG, SINGLE
     Route: 049
     Dates: start: 20151113, end: 20151115
  12. APO-FAMOTIDINE [Concomitant]
     Indication: PROPHYLAXIS AGAINST GASTROINTESTINAL ULCER
     Dosage: 20 MG, BID
     Route: 048
     Dates: start: 201412, end: 20151026
  13. TENSIOMIN [Concomitant]
     Active Substance: CAPTOPRIL
     Indication: HYPERTENSION
     Dosage: 12.5 MG, SINGLE
     Route: 049
     Dates: start: 20151124, end: 20151124
  14. VENTER [Concomitant]
     Indication: PROPHYLAXIS AGAINST GASTROINTESTINAL ULCER
     Dosage: 1000 MG, TID
     Route: 049
     Dates: start: 20151113, end: 20151124
  15. HUMULIN M3 [Concomitant]
     Active Substance: INSULIN HUMAN
     Dosage: 14 IU, QD IN THE MORNING
     Route: 058
     Dates: start: 201412, end: 20151108
  16. POTASSIUM                          /00031402/ [Concomitant]
     Active Substance: POTASSIUM
     Indication: MINERAL SUPPLEMENTATION
     Dosage: UNK G, QD
     Route: 042
     Dates: start: 20151109, end: 20151124
  17. ISOLYTE                            /01745301/ [Concomitant]
     Indication: DEHYDRATION
     Dosage: AS NEEDED ML, QD
     Route: 042
     Dates: start: 20151110, end: 20151124
  18. SALSOL [Concomitant]
     Active Substance: ALBUTEROL SULFATE
     Indication: DEHYDRATION
     Dosage: AS NEEDED ML, QD
     Route: 042
     Dates: start: 20151118, end: 20151124
  19. ECULIZUMAB [Suspect]
     Active Substance: ECULIZUMAB
     Dosage: Q2W
     Route: 042
     Dates: start: 20151111, end: 20151111
  20. ALGOPYRIN                          /00046501/ [Concomitant]
     Indication: HEADACHE
     Dosage: 1 TABLET, SINGLE
     Route: 049
     Dates: start: 20151117, end: 20151117
  21. ECULIZUMAB [Suspect]
     Active Substance: ECULIZUMAB
     Dosage: Q2W
     Route: 042
     Dates: start: 20151120, end: 20151120
  22. PANTOPRAZOL [Concomitant]
     Active Substance: PANTOPRAZOLE SODIUM
     Dosage: 40 MG, BID
     Route: 048
     Dates: start: 20151110
  23. MESTINON [Concomitant]
     Active Substance: PYRIDOSTIGMINE BROMIDE
     Indication: MYASTHENIA GRAVIS
     Dosage: 60 MG, QID
     Route: 048
     Dates: start: 20140407
  24. CIPRALEX [Concomitant]
     Active Substance: ESCITALOPRAM OXALATE
     Indication: DEPRESSION
     Dosage: 10 MG, QD
     Route: 049
     Dates: start: 20151113, end: 20151216
  25. ALGOPYRIN                          /00046501/ [Concomitant]
     Dosage: 1 AMPULE, PRN
     Route: 049
     Dates: start: 20151118, end: 20151122

REACTIONS (2)
  - Myasthenia gravis crisis [Fatal]
  - Myasthenia gravis [Not Recovered/Not Resolved]

NARRATIVE: CASE EVENT DATE: 20151108
